FAERS Safety Report 4599490-3 (Version None)
Quarter: 2005Q1

REPORT INFORMATION
  Report Type: 
  Country: None (occurrence: None)
  Receive Date: 20050303
  Receipt Date: 20050210
  Transmission Date: 20050727
  Serious: Yes (Other)
  Sender: FDA-Public Use
  Company Number: EM2005-0043

PATIENT
  Age: 34 Year
  Sex: Female

DRUGS (14)
  1. PROLEUKIN [Suspect]
     Indication: LYMPHOMA
     Dosage: SEE IMAGE
     Route: 042
  2. MESNA [Concomitant]
  3. IFOSFAMIDE [Concomitant]
  4. G-CSF (GRANULOCYTE STIMULATING FACTOR) [Concomitant]
  5. QUINOLONE [Concomitant]
  6. FLUCONAZOLE [Concomitant]
  7. ACYCLOVIR [Concomitant]
  8. CARMUSTINE [Concomitant]
  9. CYTARABINE [Concomitant]
  10. MELPHALAN (MELPHALAN) [Concomitant]
  11. PERIPHERAL BLOOD STEM CELLS [Concomitant]
  12. DIPHENHYDRAMINE (DIPHENHYDRAMINE) [Concomitant]
  13. MEPERIDINE HCL [Concomitant]
  14. ACETAMINOPHEN [Concomitant]

REACTIONS (11)
  - CRYOFIBRINOGENAEMIA [None]
  - LUNG INFILTRATION [None]
  - LYMPHOMA [None]
  - MALIGNANT NEOPLASM PROGRESSION [None]
  - NEOPLASM RECURRENCE [None]
  - PURPURA [None]
  - RETROPERITONEAL NEOPLASM [None]
  - SKIN NECROSIS [None]
  - THERAPY NON-RESPONDER [None]
  - THROMBOSIS [None]
  - UPPER RESPIRATORY TRACT INFECTION [None]
